FAERS Safety Report 22061759 (Version 1)
Quarter: 2023Q1

REPORT INFORMATION
  Report Type: Spontaneous
  Country: KR (occurrence: KR)
  Receive Date: 20230304
  Receipt Date: 20230304
  Transmission Date: 20230417
  Serious: Yes (Hospitalization, Other)
  Sender: FDA-Public Use
  Company Number: KR-002147023-NVSC2023KR045021

PATIENT
  Age: 4 Month

DRUGS (8)
  1. ZOLGENSMA [Suspect]
     Active Substance: ONASEMNOGENE ABEPARVOVEC-XIOI
     Indication: Spinal muscular atrophy
     Dosage: UNK UNK, ONCE/SINGLE (NIV TOTAL 12 HOURS)
     Route: 042
     Dates: start: 20221018
  2. PREDNISOLONE [Suspect]
     Active Substance: PREDNISOLONE
     Indication: Product used for unknown indication
     Dosage: 1 MG/KG
     Route: 048
     Dates: start: 20221017
  3. PREDNISOLONE [Suspect]
     Active Substance: PREDNISOLONE
     Dosage: 0.75 MG/KG
     Route: 048
     Dates: start: 20221123
  4. PREDNISOLONE [Suspect]
     Active Substance: PREDNISOLONE
     Dosage: 0.4 MG/KG
     Route: 048
     Dates: start: 20221130
  5. PREDNISOLONE [Suspect]
     Active Substance: PREDNISOLONE
     Dosage: 0.25 MG/KG
     Route: 048
     Dates: start: 20221219
  6. PREDNISOLONE [Suspect]
     Active Substance: PREDNISOLONE
     Dosage: 0.25 MG/KG
     Route: 048
     Dates: start: 20221222
  7. PREDNISOLONE [Suspect]
     Active Substance: PREDNISOLONE
     Dosage: 0.25 MG/KG
     Route: 048
     Dates: start: 20221224
  8. PREDNISOLONE [Suspect]
     Active Substance: PREDNISOLONE
     Dosage: UNK (TAPERING OUT)
     Route: 048
     Dates: start: 20221226

REACTIONS (15)
  - Bradycardia [Unknown]
  - Obliterative bronchiolitis [Unknown]
  - Pneumonia aspiration [Unknown]
  - Respiratory arrest [Unknown]
  - Oxygen saturation decreased [Unknown]
  - Atelectasis [Unknown]
  - Chronic respiratory disease [Unknown]
  - Lung opacity [Unknown]
  - Hypertonia [Unknown]
  - Defaecation disorder [Unknown]
  - Troponin I increased [Unknown]
  - Alanine aminotransferase increased [Unknown]
  - Aspartate aminotransferase increased [Unknown]
  - Platelet count decreased [Unknown]
  - Electrocardiogram abnormal [Unknown]

NARRATIVE: CASE EVENT DATE: 20221101
